FAERS Safety Report 7820025-3 (Version None)
Quarter: 2011Q4

REPORT INFORMATION
  Report Type: 
  Country: None (occurrence: None)
  Receive Date: 20111018
  Receipt Date: 20111006
  Transmission Date: 20120403
  Serious: Yes (Other)
  Sender: FDA-Public Use
  Company Number: PHHY2009JP39945

PATIENT
  Sex: Male

DRUGS (16)
  1. TASIGNA [Suspect]
     Dosage: 600 MG/DAY
     Dates: start: 20100122, end: 20100204
  2. TASIGNA [Suspect]
     Dosage: 800 MG/DAY
     Dates: start: 20100205
  3. OLMESARTAN MEDOXOMIL [Concomitant]
     Indication: RENAL IMPAIRMENT
     Dosage: 10 MG, DAILY
     Route: 048
     Dates: start: 20090714
  4. CALCIUM POLYSTYRENE SULFONATE [Concomitant]
     Dosage: 50 G, DAILY
     Route: 048
     Dates: start: 20091029
  5. TASIGNA [Suspect]
     Dosage: 800 MG/DAY
     Route: 048
     Dates: start: 20090810, end: 20090813
  6. TASIGNA [Suspect]
     Dosage: 400 MG/DAY
     Dates: start: 20091029, end: 20091126
  7. MUCOSTA [Concomitant]
     Dosage: 200 MG, DAILY
     Route: 048
     Dates: start: 20090821
  8. ALENDRONATE SODIUM [Concomitant]
     Dosage: 35 MG, DAILY
     Route: 048
     Dates: start: 20100819
  9. TASIGNA [Suspect]
     Dosage: 400 MG/DAY
     Route: 048
     Dates: start: 20090815, end: 20090817
  10. TASIGNA [Suspect]
     Dosage: 800 MG/DAY
     Route: 048
     Dates: start: 20090818, end: 20091001
  11. LASIX [Concomitant]
     Dosage: 10 MG, DAILY
     Route: 048
     Dates: start: 20090615, end: 20100317
  12. TASIGNA [Suspect]
     Indication: CHRONIC MYELOID LEUKAEMIA
     Dosage: 400 MG/DAY
     Route: 048
     Dates: start: 20090731, end: 20090809
  13. TASIGNA [Suspect]
     Dosage: 600 MG/DAY
     Dates: start: 20091127, end: 20100107
  14. TASIGNA [Suspect]
     Dosage: 800 MG/DAY
     Dates: start: 20100108, end: 20100121
  15. SPRYCEL [Concomitant]
     Indication: CHRONIC MYELOID LEUKAEMIA
     Dosage: 100 MG, DAILY
     Route: 048
     Dates: start: 20090617, end: 20090707
  16. PREDNISOLONE [Concomitant]
     Dosage: 15 MG, DAILY
     Route: 048
     Dates: start: 20100204

REACTIONS (6)
  - RASH PAPULAR [None]
  - BLOOD POTASSIUM INCREASED [None]
  - GYNAECOMASTIA [None]
  - PRURITUS [None]
  - BLOOD CREATININE INCREASED [None]
  - BLOOD PHOSPHORUS DECREASED [None]
